FAERS Safety Report 10213448 (Version 2)
Quarter: 2014Q2

REPORT INFORMATION
  Report Type: Spontaneous
  Country: FI (occurrence: None)
  Receive Date: 20140529
  Receipt Date: 20140610
  Transmission Date: 20141212
  Serious: Yes (Other)
  Sender: FDA-Public Use
  Company Number: SYM-2014-21256

PATIENT
  Sex: Male

DRUGS (3)
  1. VOXRA [Suspect]
     Indication: DEPRESSION
     Dates: start: 20140324
  2. LOSARTAN POTASSIUM (LOSARTAN POTASSIUM) [Concomitant]
  3. EDRONAX [Concomitant]

REACTIONS (2)
  - Electrocardiogram QT prolonged [None]
  - Syncope [None]
